FAERS Safety Report 10008202 (Version 2)
Quarter: 2014Q1

REPORT INFORMATION
  Report Type: Spontaneous
  Country: US (occurrence: US)
  Receive Date: 20140313
  Receipt Date: 20140313
  Transmission Date: 20141002
  Serious: No
  Sender: FDA-Public Use
  Company Number: US-GILEAD-2013-0071626

PATIENT
  Sex: Male

DRUGS (5)
  1. LETAIRIS [Suspect]
     Indication: PULMONARY HYPERTENSION
     Route: 048
     Dates: start: 20121128
  2. LETAIRIS [Suspect]
     Indication: SPLENECTOMY
  3. WARFARIN SODIUM [Concomitant]
  4. REVATIO [Concomitant]
  5. TYVASO [Concomitant]

REACTIONS (3)
  - Pneumonia [Unknown]
  - Hypoxia [Unknown]
  - Fluid retention [Recovered/Resolved]
